FAERS Safety Report 18648596 (Version 2)
Quarter: 2021Q3

REPORT INFORMATION
  Report Type: Spontaneous
  Country: AR (occurrence: AR)
  Receive Date: 20201222
  Receipt Date: 20210818
  Transmission Date: 20211014
  Serious: Yes (Death, Hospitalization)
  Sender: FDA-Public Use
  Company Number: AR-PUMA BIOTECHNOLOGY, LTD.-2020AR008530

PATIENT

DRUGS (3)
  1. LEVOTHYROXINE. [Concomitant]
     Active Substance: LEVOTHYROXINE
     Indication: HYPOTHYROIDISM
     Dosage: 100 UG
  2. NERLYNX [Suspect]
     Active Substance: NERATINIB
     Indication: BREAST CANCER METASTATIC
     Dosage: 240 MG
     Route: 048
     Dates: start: 20200805, end: 20210609
  3. CAPECITABINE. [Suspect]
     Active Substance: CAPECITABINE
     Indication: PRODUCT USED FOR UNKNOWN INDICATION

REACTIONS (4)
  - Off label use [Recovered/Resolved]
  - Diarrhoea [Not Recovered/Not Resolved]
  - Medical device site infection [Unknown]
  - Feeling abnormal [Fatal]

NARRATIVE: CASE EVENT DATE: 20200805
